FAERS Safety Report 16014784 (Version 1)
Quarter: 2019Q1

REPORT INFORMATION
  Report Type: Spontaneous
  Country: US (occurrence: US)
  Receive Date: 20190227
  Receipt Date: 20190227
  Transmission Date: 20190418
  Serious: Yes (Other)
  Sender: FDA-Public Use
  Company Number: PHEH2019US008668

PATIENT
  Sex: Female

DRUGS (1)
  1. TASIGNA [Suspect]
     Active Substance: NILOTINIB
     Indication: CHRONIC MYELOID LEUKAEMIA
     Dosage: 1 DF, BID
     Route: 048

REACTIONS (22)
  - Facet joint syndrome [Unknown]
  - Pneumonia [Unknown]
  - Dyspnoea [Unknown]
  - Paraesthesia [Unknown]
  - Hypoaesthesia [Unknown]
  - Respiratory tract infection [Unknown]
  - Hypertension [Unknown]
  - Hyperlipidaemia [Unknown]
  - Arteriosclerosis [Unknown]
  - Muscle spasms [Unknown]
  - Neck pain [Unknown]
  - Trigger finger [Unknown]
  - Back pain [Unknown]
  - Ear pain [Unknown]
  - Intervertebral disc degeneration [Unknown]
  - Anxiety [Unknown]
  - Peripheral vascular disorder [Unknown]
  - Headache [Unknown]
  - Cardiac failure congestive [Unknown]
  - Scoliosis [Unknown]
  - Insomnia [Unknown]
  - Depression [Unknown]
